FAERS Safety Report 6817562-7 (Version None)
Quarter: 2010Q3

REPORT INFORMATION
  Report Type: 
  Country: None (occurrence: None)
  Receive Date: 20100706
  Receipt Date: 20100625
  Transmission Date: 20110219
  Serious: Yes (Other)
  Sender: FDA-Public Use
  Company Number: GB-ELI_LILLY_AND_COMPANY-GB201006007753

PATIENT
  Age: 56 Year
  Sex: Male
  Weight: 95.25 kg

DRUGS (8)
  1. BYETTA [Suspect]
     Indication: DIABETES MELLITUS
     Dosage: 10 UG, UNKNOWN
     Route: 030
     Dates: start: 20100202
  2. ASPIRIN [Concomitant]
     Dosage: 75 MG, UNKNOWN
     Route: 065
  3. DIAMICRON [Concomitant]
     Dosage: 30 MG, UNKNOWN
     Route: 065
  4. FENOFIBRATE MSD [Concomitant]
     Dosage: 267 MG, UNKNOWN
     Route: 065
  5. LISINOPRIL [Concomitant]
     Dosage: 5 MG, UNKNOWN
     Route: 065
  6. METFORMIN HCL [Concomitant]
     Dosage: 500 MG, UNKNOWN
     Route: 065
  7. PARACETAMOL [Concomitant]
     Dosage: 500 MG, UNKNOWN
     Route: 065
  8. SIMVASTATIN [Concomitant]
     Dosage: UNK, UNKNOWN
     Route: 065

REACTIONS (2)
  - ABDOMINAL DISCOMFORT [None]
  - INCORRECT ROUTE OF DRUG ADMINISTRATION [None]
